FAERS Safety Report 4679152-4 (Version None)
Quarter: 2005Q2

REPORT INFORMATION
  Report Type: 
  Country: None (occurrence: None)
  Receive Date: 20050527
  Receipt Date: 20050315
  Transmission Date: 20051028
  Serious: No
  Sender: FDA-Public Use
  Company Number: S05-USA-01360-01

PATIENT
  Age: 44 Year
  Sex: Female

DRUGS (1)
  1. CAMPRAL [Suspect]
     Indication: SMOKING CESSATION THERAPY
     Dosage: 333 MG PRN PO
     Route: 048
     Dates: start: 20050215

REACTIONS (2)
  - DECREASED APPETITE [None]
  - THERAPEUTIC RESPONSE UNEXPECTED [None]
